FAERS Safety Report 10661819 (Version 3)
Quarter: 2015Q1

REPORT INFORMATION
  Report Type: Spontaneous
  Country: US (occurrence: None)
  Receive Date: 20141216
  Receipt Date: 20150128
  Transmission Date: 20150720
  Serious: Yes (Hospitalization)
  Sender: FDA-Public Use
  Company Number: 2014SGN01594

PATIENT
  Age: 59 Year
  Sex: Male
  Weight: 89.5 kg

DRUGS (15)
  1. LISINOPRIL (LISINOPRIL DIHYDRATE) [Concomitant]
  2. BRENTUXIMAB VEDOTIN (BRENTUXIMAB VEDOTIN) INJECTION [Suspect]
     Active Substance: BRENTUXIMAB VEDOTIN
     Indication: DIFFUSE LARGE B-CELL LYMPHOMA
     Dosage: 1.2 MG/KG, QCYCLE, INTRAVENOUS
     Route: 042
     Dates: start: 20141024, end: 20141113
  3. FERROUS SULFATE [Concomitant]
     Active Substance: FERROUS SULFATE\FERROUS SULFATE, DRIED
  4. NOVOLOG [Concomitant]
     Active Substance: INSULIN ASPART
  5. FLUCONAZOLE (FLUCONAZOLE) [Concomitant]
     Active Substance: FLUCONAZOLE
  6. PREDNISONE (PREDNISONE ACETATE) [Concomitant]
  7. SIMVASTATIN (SIMVASTATIN) [Concomitant]
     Active Substance: SIMVASTATIN
  8. LORAZEPAM (LORAZEPAM) [Concomitant]
     Active Substance: LORAZEPAM
  9. VALCYTE (VALGANCICLOVIR HYDROCHLORIDE) [Concomitant]
  10. OMEPRAZOLE (OMEPRAZOLE) [Concomitant]
     Active Substance: OMEPRAZOLE
  11. PROCHLORPERAZINE (PROCHLORPERAZINE) [Concomitant]
     Active Substance: PROCHLORPERAZINE
  12. OXYCONTIN [Concomitant]
     Active Substance: OXYCODONE HYDROCHLORIDE
  13. GABAPENTIN (GABAPENTIN) [Concomitant]
     Active Substance: GABAPENTIN
  14. LENALIDOMIDE [Suspect]
     Active Substance: LENALIDOMIDE
     Indication: DIFFUSE LARGE B-CELL LYMPHOMA
     Route: 048
     Dates: start: 20141024, end: 20141130
  15. ONDANSETRON. [Concomitant]
     Active Substance: ONDANSETRON

REACTIONS (10)
  - Asthenia [None]
  - White blood cell count abnormal [None]
  - Hypophagia [None]
  - Atelectasis [None]
  - Febrile neutropenia [None]
  - Diarrhoea [None]
  - Dehydration [None]
  - Platelet count abnormal [None]
  - Fatigue [None]
  - Haemoglobin decreased [None]

NARRATIVE: CASE EVENT DATE: 20141128
